FAERS Safety Report 7555480-X (Version None)
Quarter: 2011Q2

REPORT INFORMATION
  Report Type: 
  Country: None (occurrence: None)
  Receive Date: 20110617
  Receipt Date: 20110615
  Transmission Date: 20111010
  Serious: Yes (Death)
  Sender: FDA-Public Use
  Company Number: US-B.I. PHARMACEUTICALS,INC./RIDGEFIELD-2011-BP-01896BP

PATIENT
  Sex: Male

DRUGS (9)
  1. FELODIPINE [Concomitant]
     Dosage: 10 MG
  2. IMDUR [Concomitant]
     Dosage: 30 MG
  3. VITAMIN-MINERAL COMPOUND TAB [Concomitant]
  4. ZOCOR [Concomitant]
     Dosage: 40 MG
  5. MULTI-VITAMINS [Concomitant]
  6. ATENOLOL [Concomitant]
     Dosage: 25 MG
  7. LOSARTAN POTASSIUM [Concomitant]
     Dosage: 50 MG
  8. MELATONIN [Concomitant]
     Dosage: 5 MG
  9. PRADAXA [Suspect]
     Indication: ATRIAL FIBRILLATION
     Dosage: 300 MG
     Route: 048
     Dates: end: 20080713

REACTIONS (4)
  - VENTRICLE RUPTURE [None]
  - ISCHAEMIA [None]
  - VENTRICULAR TACHYCARDIA [None]
  - MYOCARDIAL INFARCTION [None]
